FAERS Safety Report 17771641 (Version 1)
Quarter: 2020Q2

REPORT INFORMATION
  Report Type: Report from Study
  Country: US (occurrence: US)
  Receive Date: 20200512
  Receipt Date: 20200512
  Transmission Date: 20200714
  Serious: Yes (Death, Other)
  Sender: FDA-Public Use
  Company Number: US-TEVA-2019-US-1042623

PATIENT
  Age: 39 Year
  Sex: Male

DRUGS (2)
  1. METFORMIN [Concomitant]
     Active Substance: METFORMIN HYDROCHLORIDE
     Dosage: 1000 MILLIGRAM DAILY;
     Route: 065
  2. CLOZAPINE TEVA [Suspect]
     Active Substance: CLOZAPINE
     Dosage: 250 MILLIGRAM DAILY;
     Route: 048

REACTIONS (5)
  - Apnoeic attack [Unknown]
  - Cardiac hypertrophy [Fatal]
  - Cardiac arrest [Fatal]
  - Cardiomyopathy [Unknown]
  - Stress [Fatal]

NARRATIVE: CASE EVENT DATE: 20190307
